FAERS Safety Report 19150281 (Version 1)
Quarter: 2021Q2

REPORT INFORMATION
  Report Type: Spontaneous
  Country: BR (occurrence: BR)
  Receive Date: 20210418
  Receipt Date: 20210418
  Transmission Date: 20210717
  Serious: No
  Sender: FDA-Public Use
  Company Number: BR-LUPIN PHARMACEUTICALS INC.-2021-04701

PATIENT
  Age: 65 Year
  Sex: Female

DRUGS (2)
  1. 5?FLUOROURACIL [FLUOROURACIL] [Suspect]
     Active Substance: FLUOROURACIL
     Indication: EYELID SCAR
     Dosage: 10 MILLIGRAM; THE PATIENT RECEIVED ONE INJECTION; 0.2 ML OF A COMBINED SOLUTION OF TRIAMCINOLONE (20
     Route: 026
  2. TRIAMCINOLONE [Suspect]
     Active Substance: TRIAMCINOLONE
     Indication: EYELID SCAR
     Dosage: 4 MILLIGRAM; THE PATIENT RECEIVED ONE INJECTION; 0.2 ML OF A COMBINED SOLUTION OF TRIAMCINOLONE (20
     Route: 026

REACTIONS (1)
  - Injection site pain [Unknown]
